FAERS Safety Report 7547662-8 (Version None)
Quarter: 2011Q2

REPORT INFORMATION
  Report Type: 
  Country: None (occurrence: None)
  Receive Date: 20110614
  Receipt Date: 20110607
  Transmission Date: 20111010
  Serious: Yes (Hospitalization)
  Sender: FDA-Public Use
  Company Number: US-RB-027311-11

PATIENT
  Age: 56 Year
  Sex: Female

DRUGS (2)
  1. OPIOIDS [Suspect]
     Indication: PRODUCT USED FOR UNKNOWN INDICATION
     Dosage: UNKNOWN DOSING INFORMATION
     Route: 065
  2. SUBOXONE [Suspect]
     Indication: PRODUCT USED FOR UNKNOWN INDICATION
     Dosage: DOSAGE INFORMATION UNKNOWN
     Route: 065

REACTIONS (12)
  - ARTHROPATHY [None]
  - FATIGUE [None]
  - HICCUPS [None]
  - AFFECT LABILITY [None]
  - DEPRESSION [None]
  - PSYCHIATRIC SYMPTOM [None]
  - PAIN IN EXTREMITY [None]
  - CONDITION AGGRAVATED [None]
  - DRUG WITHDRAWAL SYNDROME [None]
  - HYPOKINESIA [None]
  - MUSCULOSKELETAL PAIN [None]
  - HYPERSOMNIA [None]
